FAERS Safety Report 10208140 (Version 1)
Quarter: 2014Q2

REPORT INFORMATION
  Report Type: Spontaneous
  Country: US (occurrence: US)
  Receive Date: 20140530
  Receipt Date: 20140530
  Transmission Date: 20141212
  Serious: No
  Sender: FDA-Public Use
  Company Number: US-PURDUE-USA-2013-0103638

PATIENT
  Sex: Female

DRUGS (9)
  1. MORPHINE SULFATE EXTENDED-RELEASE TABLETS (RHODES 74-862) [Suspect]
     Indication: BACK PAIN
     Dosage: 60 MG, TID
     Route: 048
     Dates: start: 2012
  2. MORPHINE                           /00036302/ [Concomitant]
     Indication: BREAKTHROUGH PAIN
     Dosage: 30 MG, BID
     Route: 048
     Dates: start: 2007
  3. RISPERDON [Concomitant]
     Indication: ANTIPSYCHOTIC DRUG LEVEL
     Dosage: 1 MG, DAILY
     Route: 048
  4. GABAPENTIN [Concomitant]
     Indication: CONVULSION
     Dosage: 300 MG, DAILY
     Route: 048
  5. ATENOLOL [Concomitant]
     Indication: BLOOD PRESSURE
     Dosage: 100 MG, DAILY
     Route: 048
  6. ZOLOFT [Concomitant]
     Indication: DEPRESSION
     Dosage: 100 MG, DAILY
     Route: 048
  7. ESTRADIOL [Concomitant]
     Indication: HYSTERECTOMY
     Dosage: 1 MG, DAILY
     Route: 048
  8. XANAX [Concomitant]
     Indication: ANXIETY
     Dosage: 1 MG, TID
     Route: 048
  9. LISINOPRIL [Concomitant]
     Indication: BLOOD PRESSURE
     Dosage: 20 MG, DAILY
     Route: 048

REACTIONS (1)
  - Drug ineffective [Not Recovered/Not Resolved]
